FAERS Safety Report 6171835-2 (Version None)
Quarter: 2009Q2

REPORT INFORMATION
  Report Type: 
  Country: None (occurrence: None)
  Receive Date: 20090429
  Receipt Date: 20090410
  Transmission Date: 20091009
  Serious: Yes (Other)
  Sender: FDA-Public Use
  Company Number: FR-ROCHE-582472

PATIENT
  Sex: Male
  Weight: 5 kg

DRUGS (5)
  1. INVIRASE [Suspect]
     Indication: HIV INFECTION
     Dosage: FREQUENCY REPORTED AS QD
     Route: 064
     Dates: start: 20080306
  2. KIVEXA [Concomitant]
     Indication: HIV INFECTION
     Dates: start: 20080306
  3. NORVIR [Concomitant]
     Indication: HIV INFECTION
     Dates: start: 20080306
  4. TRIZIVIR [Concomitant]
     Indication: HIV INFECTION
     Dates: start: 20040410, end: 20080306
  5. FERROUS SULFATE TAB [Concomitant]
     Indication: ANAEMIA PROPHYLAXIS
     Dates: start: 20080515

REACTIONS (2)
  - FOETAL MACROSOMIA [None]
  - NORMAL NEWBORN [None]
